FAERS Safety Report 7518467 (Version 2)
Quarter: 2020Q3

REPORT INFORMATION
  Report Type: Report from Study
  Country: US (occurrence: US)
  Receive Date: 20100802
  Receipt Date: 20100908
  Transmission Date: 20201105
  Serious: Yes (Death)
  Sender: FDA-Public Use
  Company Number: US-ROCHE-717944

PATIENT
  Sex: Male

DRUGS (1)
  1. IBANDRONIC ACID. [Suspect]
     Active Substance: IBANDRONIC ACID
     Indication: OSTEOPOROSIS
     Route: 065
     Dates: start: 20070524, end: 20100628

REACTIONS (3)
  - Coronary artery disease [Fatal]
  - Cardiac failure congestive [Fatal]
  - Atrial fibrillation [Fatal]
